FAERS Safety Report 8010896-2 (Version None)
Quarter: 2011Q4

REPORT INFORMATION
  Report Type: 
  Country: None (occurrence: None)
  Receive Date: 20111228
  Receipt Date: 20111207
  Transmission Date: 20120403
  Serious: Yes (Hospitalization)
  Sender: FDA-Public Use
  Company Number: US-ROCHE-1020709

PATIENT
  Sex: Male
  Weight: 84.444 kg

DRUGS (7)
  1. ACETAMINOPHEN AND HYDROCODONE BITARTRATE [Concomitant]
     Dates: start: 20110624
  2. FOLIC ACID [Concomitant]
     Dates: start: 20051122
  3. MABTHERA [Suspect]
     Indication: RHEUMATOID ARTHRITIS
     Route: 042
  4. ZOLPIDEM TARTRATE [Concomitant]
     Dates: start: 20111128
  5. OMEPRAZOLE [Concomitant]
     Dates: start: 20070625
  6. CALCIUM CARBONATE [Concomitant]
     Dates: start: 20040120
  7. PREDNISONE TAB [Concomitant]
     Dates: start: 20060731

REACTIONS (2)
  - SYSTEMIC INFLAMMATORY RESPONSE SYNDROME [None]
  - URINARY TRACT INFECTION [None]
